FAERS Safety Report 7748516-4 (Version None)
Quarter: 2011Q3

REPORT INFORMATION
  Report Type: 
  Country: None (occurrence: None)
  Receive Date: 20110914
  Receipt Date: 20110901
  Transmission Date: 20111222
  Serious: No
  Sender: FDA-Public Use
  Company Number: US-BIOGENIDEC-2011BI021863

PATIENT
  Sex: Female

DRUGS (5)
  1. NAMENDA [Concomitant]
     Indication: CONFUSIONAL STATE
  2. TYSABRI [Suspect]
     Indication: MULTIPLE SCLEROSIS
     Route: 042
     Dates: start: 20110523
  3. AVONEX [Concomitant]
     Indication: MULTIPLE SCLEROSIS
     Route: 030
     Dates: start: 19970101
  4. TRAMADOL HCL [Concomitant]
     Indication: PAIN
  5. AVONEX [Concomitant]
     Route: 030

REACTIONS (10)
  - ABDOMINAL PAIN UPPER [None]
  - PAINFUL RESPIRATION [None]
  - FATIGUE [None]
  - PAIN IN EXTREMITY [None]
  - PLEURITIC PAIN [None]
  - DRUG INEFFECTIVE [None]
  - DYSPNOEA [None]
  - HYPOAESTHESIA [None]
  - ARTHRALGIA [None]
  - DARK CIRCLES UNDER EYES [None]
